FAERS Safety Report 7290748-6 (Version None)
Quarter: 2011Q1

REPORT INFORMATION
  Report Type: 
  Country: None (occurrence: None)
  Receive Date: 20110201
  Receipt Date: 20110121
  Transmission Date: 20110831
  Serious: Yes (Death)
  Sender: FDA-Public Use
  Company Number: 2010AC000142

PATIENT
  Age: 82 Year
  Sex: Female

DRUGS (5)
  1. DIGOXIN [Suspect]
     Dosage: PO
     Route: 048
  2. *WARFARIN [Concomitant]
  3. AMIODARONE HCL [Concomitant]
  4. DIGOXIN [Suspect]
     Dosage: .25 MG;
     Dates: start: 20070401, end: 20080201
  5. ACTIVASE [Concomitant]

REACTIONS (39)
  - CORONARY ARTERY DISEASE [None]
  - COAGULOPATHY [None]
  - MYOCARDIAL INFARCTION [None]
  - DEPRESSION [None]
  - SUBENDOCARDIAL ISCHAEMIA [None]
  - ATRIOVENTRICULAR BLOCK FIRST DEGREE [None]
  - ARTERIOSCLEROSIS CORONARY ARTERY [None]
  - AORTIC VALVE DISEASE [None]
  - RENAL FAILURE CHRONIC [None]
  - ECCHYMOSIS [None]
  - HYPERCHOLESTEROLAEMIA [None]
  - MITRAL VALVE INCOMPETENCE [None]
  - CONFUSIONAL STATE [None]
  - CHRONIC OBSTRUCTIVE PULMONARY DISEASE [None]
  - NODAL RHYTHM [None]
  - HEAD INJURY [None]
  - NEUROPATHY PERIPHERAL [None]
  - HALLUCINATION [None]
  - UPPER RESPIRATORY TRACT INFECTION [None]
  - SINUS BRADYCARDIA [None]
  - PULMONARY VALVE INCOMPETENCE [None]
  - INJURY [None]
  - ATRIAL FIBRILLATION [None]
  - BUNDLE BRANCH BLOCK RIGHT [None]
  - RENAL FAILURE ACUTE [None]
  - HYPOTENSION [None]
  - ANAEMIA [None]
  - FALL [None]
  - CARDIAC ARREST [None]
  - RESTRICTIVE PULMONARY DISEASE [None]
  - CARDIAC FAILURE CONGESTIVE [None]
  - ANXIETY [None]
  - CARDIAC VALVE DISEASE [None]
  - PULMONARY HYPERTENSION [None]
  - AORTIC STENOSIS [None]
  - ARRHYTHMIA [None]
  - INSOMNIA [None]
  - FOREIGN BODY [None]
  - PNEUMONIA [None]
